FAERS Safety Report 7465031-6 (Version None)
Quarter: 2011Q2

REPORT INFORMATION
  Report Type: 
  Country: None (occurrence: None)
  Receive Date: 20110509
  Receipt Date: 20110331
  Transmission Date: 20111010
  Serious: Yes (Hospitalization, Other)
  Sender: FDA-Public Use
  Company Number: US-BAYER-201018994NA

PATIENT
  Age: 40 Year
  Sex: Female
  Weight: 62.132 kg

DRUGS (8)
  1. YAZ [Suspect]
     Indication: MIGRAINE
  2. NASONEX [Concomitant]
  3. YAZ [Suspect]
     Indication: PREMENSTRUAL SYNDROME
     Dosage: UNK
     Dates: start: 20080806, end: 20080901
  4. YAZ [Suspect]
  5. IMITREX [Concomitant]
  6. MIDRIN [Concomitant]
     Dosage: UNK UNK, PRN
  7. CLARITIN [Concomitant]
     Dosage: UNK UNK, PRN
  8. PAXIL [Concomitant]
     Dosage: 30 MG, UNK

REACTIONS (1)
  - PULMONARY EMBOLISM [None]
